FAERS Safety Report 10584565 (Version 1)
Quarter: 2014Q4

REPORT INFORMATION
  Report Type: Spontaneous
  Country: US (occurrence: US)
  Receive Date: 20141114
  Receipt Date: 20141114
  Transmission Date: 20150529
  Serious: No
  Sender: FDA-Public Use
  Company Number: US-009507513-1409USA004294

PATIENT
  Age: 8 Month
  Sex: Female
  Weight: 18.14 kg

DRUGS (1)
  1. MIRALAX [Suspect]
     Active Substance: POLYETHYLENE GLYCOL 3350
     Indication: BOWEL MOVEMENT IRREGULARITY
     Dosage: 1/2 TO 3/4 CAPFUL, QD
     Route: 048
     Dates: start: 201012

REACTIONS (5)
  - Incorrect drug administration duration [Unknown]
  - Product quality issue [Unknown]
  - Product use issue [Unknown]
  - Drug prescribing error [Unknown]
  - Drug administered to patient of inappropriate age [Unknown]

NARRATIVE: CASE EVENT DATE: 201012
